FAERS Safety Report 24670189 (Version 1)
Quarter: 2024Q4

REPORT INFORMATION
  Report Type: Spontaneous
  Country: GB (occurrence: GB)
  Receive Date: 20241127
  Receipt Date: 20241127
  Transmission Date: 20250114
  Serious: Yes (Other)
  Sender: Haleon PLC
  Company Number: None

PATIENT
  Age: 30 Year
  Sex: Female
  Weight: 95 kg

DRUGS (4)
  1. IBUPROFEN [Suspect]
     Active Substance: IBUPROFEN
     Indication: Tension headache
     Dosage: DON^T KNOW
     Dates: start: 19820710, end: 19860710
  2. UNSPECIFIED INGREDIENT [Suspect]
     Active Substance: UNSPECIFIED INGREDIENT
     Indication: Osteoarthritis
     Dosage: DON^T REMEMBER
     Dates: start: 19900710, end: 19920710
  3. BOOTS PARACETAMOL AND CODEINE [Concomitant]
     Indication: Adverse drug reaction
     Dates: start: 19900710, end: 20241123
  4. ASPIRIN [Suspect]
     Active Substance: ASPIRIN
     Indication: Headache
     Dates: start: 19800610, end: 19880710

REACTIONS (2)
  - Medication error [Unknown]
  - Wheezing [Not Recovered/Not Resolved]

NARRATIVE: CASE EVENT DATE: 19800610
